FAERS Safety Report 13173678 (Version 2)
Quarter: 2018Q1

REPORT INFORMATION
  Report Type: Spontaneous
  Country: US (occurrence: US)
  Receive Date: 20170201
  Receipt Date: 20180125
  Transmission Date: 20180508
  Serious: Yes (Hospitalization)
  Sender: FDA-Public Use
  Company Number: US-ABBVIE-16P-163-1675578-00

PATIENT
  Sex: Female
  Weight: 68.4 kg

DRUGS (4)
  1. PREDNISONE. [Suspect]
     Active Substance: PREDNISONE
     Indication: RHEUMATOID ARTHRITIS
     Dosage: ONE MORNING AND ONE NIGHT
     Route: 048
  2. XELJANZ [Suspect]
     Active Substance: TOFACITINIB CITRATE
     Indication: RHEUMATOID ARTHRITIS
     Route: 048
     Dates: start: 20160714, end: 201611
  3. XELJANZ [Suspect]
     Active Substance: TOFACITINIB CITRATE
     Route: 048
  4. HUMIRA [Suspect]
     Active Substance: ADALIMUMAB
     Indication: RHEUMATOID ARTHRITIS
     Route: 058
     Dates: start: 20160406, end: 201607

REACTIONS (20)
  - Weight increased [Unknown]
  - Abnormal behaviour [Unknown]
  - Nephrolithiasis [Unknown]
  - Fall [Unknown]
  - Urinary incontinence [Unknown]
  - Pain [Recovering/Resolving]
  - Drug ineffective [Unknown]
  - Mobility decreased [Recovering/Resolving]
  - Gait inability [Recovering/Resolving]
  - Skin discolouration [Unknown]
  - Tremor [Unknown]
  - Disorientation [Unknown]
  - Joint range of motion decreased [Unknown]
  - Blood pressure increased [Unknown]
  - Cystitis [Unknown]
  - Contusion [Unknown]
  - Cystitis [Recovered/Resolved]
  - Heart rate decreased [Recovered/Resolved]
  - Loss of consciousness [Unknown]
  - Chest pain [Recovered/Resolved]

NARRATIVE: CASE EVENT DATE: 2016
